FAERS Safety Report 21776026 (Version 7)
Quarter: 2024Q4

REPORT INFORMATION
  Report Type: Spontaneous
  Country: CA (occurrence: CA)
  Receive Date: 20221226
  Receipt Date: 20241108
  Transmission Date: 20250114
  Serious: Yes (Other)
  Sender: CELLTRION
  Company Number: CA-CELLTRION INC.-2021CA012563

PATIENT

DRUGS (23)
  1. INFLECTRA [Suspect]
     Active Substance: INFLIXIMAB-DYYB
     Indication: Crohn^s disease
     Dosage: UNK
  2. INFLECTRA [Suspect]
     Active Substance: INFLIXIMAB-DYYB
     Dosage: 500 MG (5MG/KG), Q 0, 2, 6, THEN EVERY 8 WEEKS
     Route: 042
     Dates: start: 20210727
  3. INFLECTRA [Suspect]
     Active Substance: INFLIXIMAB-DYYB
     Dosage: 500 MG, Q 0, 2, 6, THEN EVERY 8 WEEKS
     Route: 042
     Dates: start: 20210809
  4. INFLECTRA [Suspect]
     Active Substance: INFLIXIMAB-DYYB
     Dosage: 500 MG, Q 0, 2, 6, THEN EVERY 8 WEEKS
     Route: 042
     Dates: start: 20210907
  5. INFLECTRA [Suspect]
     Active Substance: INFLIXIMAB-DYYB
     Dosage: 500 MG, Q 0, 2, 6, THEN EVERY 8 WEEKS
     Route: 042
     Dates: start: 20211028
  6. INFLECTRA [Suspect]
     Active Substance: INFLIXIMAB-DYYB
     Dosage: 500 MG, Q 0, 2, 6, THEN EVERY 8 WEEKS
     Route: 042
     Dates: start: 20211223
  7. INFLECTRA [Suspect]
     Active Substance: INFLIXIMAB-DYYB
     Dosage: 500 MG, Q 0, 2, 6, THEN EVERY 8 WEEKS
     Route: 042
     Dates: start: 20220215
  8. INFLECTRA [Suspect]
     Active Substance: INFLIXIMAB-DYYB
     Dosage: 500 MG, Q 0, 2, 6, THEN EVERY 8 WEEKS
     Route: 042
     Dates: start: 20220414
  9. INFLECTRA [Suspect]
     Active Substance: INFLIXIMAB-DYYB
     Dosage: 500 MG, Q 0, 2, 6, THEN EVERY 8 WEEKS
     Route: 042
     Dates: start: 20220609
  10. INFLECTRA [Suspect]
     Active Substance: INFLIXIMAB-DYYB
     Dosage: 500 MG, Q 0, 2, 6, THEN EVERY 8 WEEKS
     Route: 042
     Dates: start: 20220727
  11. INFLECTRA [Suspect]
     Active Substance: INFLIXIMAB-DYYB
     Dosage: 500 MG, Q 0, 2, 6, THEN EVERY 8 WEEKS
     Route: 042
     Dates: start: 20220804
  12. INFLECTRA [Suspect]
     Active Substance: INFLIXIMAB-DYYB
     Dosage: 500 MG, Q 0, 2, 6, THEN EVERY 8 WEEKS
     Route: 042
     Dates: start: 20220929
  13. INFLECTRA [Suspect]
     Active Substance: INFLIXIMAB-DYYB
     Dosage: 500 MG, AFTER 11 WEEKS (EVERY 8 WEEKS)
     Route: 042
     Dates: start: 20221215
  14. INFLECTRA [Suspect]
     Active Substance: INFLIXIMAB-DYYB
     Dosage: 5 MG/KG, Q 0, 2, 6, THEN EVERY 8 WEEKS
     Route: 042
     Dates: start: 20230926
  15. INFLECTRA [Suspect]
     Active Substance: INFLIXIMAB-DYYB
     Dosage: 520 MG (5 MG/KG), AFTER 10 WEEKS (EVERY 8 WEEKS)
     Route: 042
     Dates: start: 20231205
  16. INFLECTRA [Suspect]
     Active Substance: INFLIXIMAB-DYYB
     Dosage: 525 MG (5 MG/KG), Q 0, 2, 6, THEN EVERY 8 WEEKS
     Route: 042
     Dates: start: 20240130
  17. INFLECTRA [Suspect]
     Active Substance: INFLIXIMAB-DYYB
     Dosage: 5 MG/KG, Q 0, 2, 6, THEN EVERY 8 WEEKS.
     Route: 042
     Dates: start: 20240326
  18. INFLECTRA [Suspect]
     Active Substance: INFLIXIMAB-DYYB
     Dosage: 535 MG, AFTER 8 WEEKS (5 MG/KG, 0, 2, 6, THEN EVERY 8 WEEKS)
     Route: 042
     Dates: start: 20240521
  19. INFLECTRA [Suspect]
     Active Substance: INFLIXIMAB-DYYB
     Dosage: 510 MG, 8 WEEKS (5 MG/KG,  0, 2, 6, THEN EVERY 8 WEEKS)
     Route: 042
     Dates: start: 20240716
  20. INFLECTRA [Suspect]
     Active Substance: INFLIXIMAB-DYYB
     Dosage: 5 MG/KG, Q 0, 2, 6, THEN EVERY 8 WEEKS
     Route: 042
     Dates: start: 20240905
  21. INFLECTRA [Suspect]
     Active Substance: INFLIXIMAB-DYYB
     Dosage: 515 MG, 7 WEEKS AND 5 DAYS (PRESCRIBED EVERY 8 WEEKS)
     Route: 042
     Dates: start: 20241029
  22. PENTASA [Concomitant]
     Active Substance: MESALAMINE
     Dosage: UNK
  23. TENOFOVIR [Concomitant]
     Active Substance: TENOFOVIR
     Indication: Hepatitis B
     Dosage: UNK
     Dates: start: 202102

REACTIONS (4)
  - Weight increased [Unknown]
  - Condition aggravated [Not Recovered/Not Resolved]
  - Off label use [Unknown]
  - Inappropriate schedule of product administration [Unknown]

NARRATIVE: CASE EVENT DATE: 20210809
